FAERS Safety Report 12698749 (Version 3)
Quarter: 2023Q2

REPORT INFORMATION
  Report Type: Report from Study
  Country: JP (occurrence: JP)
  Receive Date: 20160830
  Receipt Date: 20230414
  Transmission Date: 20230722
  Serious: Yes (Death)
  Sender: FDA-Public Use
  Company Number: JP-PFIZER INC-2016406332

PATIENT
  Age: 9 Month
  Sex: Female
  Weight: 4.3 kg

DRUGS (12)
  1. SIROLIMUS [Suspect]
     Active Substance: SIROLIMUS
     Indication: Lymphangioma
     Dosage: 0.35 MG, 1 IN 1 D
     Route: 048
     Dates: start: 20151221, end: 20160104
  2. SIROLIMUS [Suspect]
     Active Substance: SIROLIMUS
     Dosage: 0.45 MG, 1 IN 1 D
     Route: 048
     Dates: start: 20160105, end: 20160126
  3. SIROLIMUS [Suspect]
     Active Substance: SIROLIMUS
     Dosage: 0.65 MG, 1 IN 1 D
     Route: 048
     Dates: start: 20160311, end: 20160324
  4. SIROLIMUS [Suspect]
     Active Substance: SIROLIMUS
     Dosage: 1 MG, 1 IN 1 D
     Route: 048
     Dates: start: 20160324, end: 20160526
  5. SIROLIMUS [Suspect]
     Active Substance: SIROLIMUS
     Dosage: 1.2 MG, 1 IN 1 D
     Route: 048
     Dates: start: 20160527, end: 20160616
  6. SIROLIMUS [Suspect]
     Active Substance: SIROLIMUS
     Dosage: 1.1 MG, 1 IN 1 D
     Route: 048
     Dates: start: 20160617, end: 20160630
  7. SIROLIMUS [Suspect]
     Active Substance: SIROLIMUS
     Dosage: 1.2 MG, 1 IN 1 D
     Route: 048
     Dates: start: 20160701, end: 20160814
  8. PHENOBARBITAL [Concomitant]
     Active Substance: PHENOBARBITAL
     Indication: Sedation
     Dosage: UNK
     Route: 048
     Dates: start: 20160317
  9. TRICLOFOS SODIUM [Concomitant]
     Active Substance: TRICLOFOS SODIUM
     Indication: Sedation
     Dosage: UNK
     Route: 048
     Dates: start: 20160114
  10. SODIUM PHOSPHATE, DIBASIC\SODIUM PHOSPHATE, MONOBASIC [Concomitant]
     Active Substance: SODIUM PHOSPHATE, DIBASIC\SODIUM PHOSPHATE, MONOBASIC
     Indication: Hypophosphataemia
     Dosage: UNK
     Route: 048
     Dates: end: 20160609
  11. SODIUM PHOSPHATE, DIBASIC\SODIUM PHOSPHATE, MONOBASIC [Concomitant]
     Active Substance: SODIUM PHOSPHATE, DIBASIC\SODIUM PHOSPHATE, MONOBASIC
     Indication: Nutritional supplementation
  12. EPPIKAJUTSUTO [Concomitant]
     Indication: Lymphangioma
     Dosage: UNK
     Route: 048
     Dates: end: 20160204

REACTIONS (4)
  - Asphyxia [Fatal]
  - Cardiac arrest [Fatal]
  - Hypertriglyceridaemia [Not Recovered/Not Resolved]
  - Off label use [Unknown]

NARRATIVE: CASE EVENT DATE: 20160602
